FAERS Safety Report 16804233 (Version 1)
Quarter: 2019Q3

REPORT INFORMATION
  Report Type: Spontaneous
  Country: AT (occurrence: AT)
  Receive Date: 20190913
  Receipt Date: 20190913
  Transmission Date: 20191005
  Serious: Yes (Hospitalization)
  Sender: FDA-Public Use
  Company Number: AT-BIOGEN-2019BI00760905

PATIENT
  Age: 44 Year
  Sex: Female
  Weight: 61 kg

DRUGS (3)
  1. SPINRAZA [Suspect]
     Active Substance: NUSINERSEN
     Indication: SPINAL MUSCULAR ATROPHY
     Route: 037
     Dates: start: 20190320
  2. SPINRAZA [Suspect]
     Active Substance: NUSINERSEN
     Dosage: DAY 0, DAY 14, DAY 28, AND DAY 63
     Route: 037
  3. VITAMIN D [Concomitant]
     Active Substance: VITAMIN D NOS
     Indication: PRODUCT USED FOR UNKNOWN INDICATION
     Route: 065

REACTIONS (1)
  - Depressive delusion [Unknown]

NARRATIVE: CASE EVENT DATE: 20190620
